FAERS Safety Report 7682072-4 (Version None)
Quarter: 2011Q3

REPORT INFORMATION
  Report Type: 
  Country: None (occurrence: None)
  Receive Date: 20110810
  Receipt Date: 20110801
  Transmission Date: 20111222
  Serious: Yes (Death, Hospitalization)
  Sender: FDA-Public Use
  Company Number: WAES1101ITA00008

PATIENT
  Age: 68 Year
  Sex: Male

DRUGS (4)
  1. RABEPRAZOLE SODIUM [Concomitant]
  2. CIEFFERALGAN [Concomitant]
  3. PREDNISONE [Concomitant]
  4. CAP VORINOSTAT [Suspect]
     Indication: MESOTHELIOMA
     Dosage: PO
     Route: 048
     Dates: start: 20101211, end: 20110110

REACTIONS (2)
  - CEREBROVASCULAR ACCIDENT [None]
  - TRANSIENT ISCHAEMIC ATTACK [None]
